FAERS Safety Report 16795094 (Version 1)
Quarter: 2019Q3

REPORT INFORMATION
  Report Type: Spontaneous
  Country: US (occurrence: US)
  Receive Date: 20190722
  Receipt Date: 20190722
  Transmission Date: 20191005
  Serious: Yes (Hospitalization)
  Sender: FDA-Public Use
  Company Number: None

PATIENT
  Age: 42 Year
  Sex: Male

DRUGS (15)
  1. GABAPENTIN. [Concomitant]
     Active Substance: GABAPENTIN
  2. GENVOYA [Concomitant]
     Active Substance: COBICISTAT\ELVITEGRAVIR\EMTRICITABINE\TENOFOVIR ALAFENAMIDE FUMARATE
  3. IBUPROFEN. [Concomitant]
     Active Substance: IBUPROFEN
  4. TOPIRAMATE. [Concomitant]
     Active Substance: TOPIRAMATE
  5. AMITRIPTYLINE [Concomitant]
     Active Substance: AMITRIPTYLINE
  6. NYSTARIN [Concomitant]
  7. ATORVASTATIN [Concomitant]
     Active Substance: ATORVASTATIN
  8. TRAZODONE [Concomitant]
     Active Substance: TRAZODONE HYDROCHLORIDE
  9. LISINOPRIL. [Concomitant]
     Active Substance: LISINOPRIL
  10. ATENOLOL. [Concomitant]
     Active Substance: ATENOLOL
  11. LOSARTAN. [Concomitant]
     Active Substance: LOSARTAN
  12. BIKTARVY [Suspect]
     Active Substance: BICTEGRAVIR SODIUM\EMTRICITABINE\TENOFOVIR ALAFENAMIDE FUMARATE
     Indication: HIV INFECTION
     Dosage: 50-200-25 MG QD PO
     Route: 048
  13. ACYCLOVIR. [Concomitant]
     Active Substance: ACYCLOVIR
  14. ESCITALOPRAM [Concomitant]
     Active Substance: ESCITALOPRAM OXALATE
  15. METOPROLOL. [Concomitant]
     Active Substance: METOPROLOL

REACTIONS (1)
  - Hospitalisation [None]
